FAERS Safety Report 9825456 (Version 1)
Quarter: 2013Q4

REPORT INFORMATION
  Report Type: Spontaneous
  Country: US (occurrence: None)
  Receive Date: 20131028
  Receipt Date: 20131028
  Transmission Date: 20140711
  Serious: Yes (Other)
  Sender: FDA-Public Use
  Company Number: 2013US002495

PATIENT
  Age: 76 Year
  Sex: Male
  Weight: 97 kg

DRUGS (13)
  1. ICLUSIG [Suspect]
     Indication: CHRONIC MYELOID LEUKAEMIA
     Dosage: 45 MG, QD, 2 WEEKS ON AND 2 WEEKS OFF, ORAL
     Route: 048
     Dates: start: 20130522
  2. ZEMPLAR (PARICALCITOL) [Concomitant]
  3. VITAMIN D (COLECALCIFEROL) [Concomitant]
  4. FINASTERIDE (FINASTERIDE) [Concomitant]
  5. LEVEMIR (INSULIN DETEMIR) [Concomitant]
  6. NITROGLYCERIN (GLYCERYL TRINITRATE) [Concomitant]
  7. PRAVASTATIN (PRAVASTATIN SODIUM) [Concomitant]
  8. INSULIN (INSULIN HUMAN) [Concomitant]
  9. GLIMEPIRIDE (GLIMEPIRIDE) [Concomitant]
  10. AMLODIPINE (AMLODIPINE MESILATE) [Concomitant]
  11. QUINIDINE (QUINIDINE BISULFATE) [Concomitant]
  12. LEXAPRO (ESCITALOPRAM OXALATE) [Concomitant]
  13. ASPIRIN (ACETYLSALICYLIC ACID) [Concomitant]

REACTIONS (2)
  - Skin induration [None]
  - Headache [None]
